FAERS Safety Report 4286115-X (Version None)
Quarter: 2004Q1

REPORT INFORMATION
  Report Type: 
  Country: None (occurrence: None)
  Receive Date: 20040204
  Receipt Date: 20040204
  Transmission Date: 20041129
  Serious: Yes (Other)
  Sender: FDA-Public Use
  Company Number: None

PATIENT
  Age: 27 Year
  Sex: Female
  Weight: 127.0072 kg

DRUGS (2)
  1. EFFEXOR XR [Suspect]
     Indication: ANXIETY
     Dosage: 150 MG DAILY ORAL
     Route: 048
     Dates: start: 20030404, end: 20030830
  2. EFFEXOR XR [Suspect]
     Indication: DEPRESSION
     Dosage: 150 MG DAILY ORAL
     Route: 048
     Dates: start: 20030404, end: 20030830

REACTIONS (15)
  - ANXIETY [None]
  - BLOOD PRESSURE INCREASED [None]
  - CONSTIPATION [None]
  - CONVULSION [None]
  - DYSPNOEA [None]
  - HYPERHIDROSIS [None]
  - IRRITABLE BOWEL SYNDROME [None]
  - LOOSE STOOLS [None]
  - MIGRAINE [None]
  - MOOD SWINGS [None]
  - NEPHROLITHIASIS [None]
  - NIGHTMARE [None]
  - OBSESSIVE THOUGHTS [None]
  - OEDEMA PERIPHERAL [None]
  - TREMOR [None]
